FAERS Safety Report 5809626-1 (Version None)
Quarter: 2008Q3

REPORT INFORMATION
  Report Type: 
  Country: None (occurrence: None)
  Receive Date: 20080709
  Receipt Date: 20080702
  Transmission Date: 20090109
  Serious: Yes (Other)
  Sender: FDA-Public Use
  Company Number: 2008SP009060

PATIENT
  Age: 47 Year
  Sex: Female
  Weight: 88 kg

DRUGS (6)
  1. TEMOZOLOMIDE [Suspect]
     Indication: GLIOBLASTOMA
     Dosage: 75 MG/M2; QD; PO;  150 MG/M2; QD;PO
     Route: 048
     Dates: end: 20071110
  2. TEMOZOLOMIDE [Suspect]
     Indication: GLIOBLASTOMA
     Dosage: 75 MG/M2; QD; PO;  150 MG/M2; QD;PO
     Route: 048
     Dates: start: 20071216, end: 20071223
  3. TEMOZOLOMIDE [Suspect]
     Indication: GLIOBLASTOMA
     Dosage: 75 MG/M2; QD; PO;  150 MG/M2; QD;PO
     Route: 048
     Dates: start: 20080116, end: 20080120
  4. TEMOZOLOMIDE [Suspect]
     Indication: GLIOBLASTOMA
     Dosage: 75 MG/M2; QD; PO;  150 MG/M2; QD;PO
     Route: 048
     Dates: start: 20080301, end: 20080302
  5. DEROXAT [Concomitant]
  6. SOLUPRED [Concomitant]

REACTIONS (15)
  - CONDITION AGGRAVATED [None]
  - CONFUSIONAL STATE [None]
  - DIPLOPIA [None]
  - DISORIENTATION [None]
  - DISTURBANCE IN ATTENTION [None]
  - FALL [None]
  - HAEMATOTOXICITY [None]
  - HAEMORRHOIDS [None]
  - HEMIPARESIS [None]
  - HYPERSOMNIA [None]
  - LEUKOPENIA [None]
  - NERVOUS SYSTEM DISORDER [None]
  - PURPURA [None]
  - SOMNOLENCE [None]
  - THROMBOCYTOPENIA [None]
